FAERS Safety Report 6508319-5 (Version None)
Quarter: 2009Q4

REPORT INFORMATION
  Report Type: 
  Country: None (occurrence: None)
  Receive Date: 20091221
  Receipt Date: 20090804
  Transmission Date: 20100525
  Serious: No
  Sender: FDA-Public Use
  Company Number: US-ASTRAZENECA-2006UW00290

PATIENT
  Age: 75 Year
  Sex: Male
  Weight: 87.1 kg

DRUGS (9)
  1. CRESTOR [Suspect]
     Indication: HYPERCHOLESTEROLAEMIA
     Route: 048
     Dates: start: 20051001
  2. CRESTOR [Suspect]
     Route: 048
  3. CRESTOR [Suspect]
     Dosage: SPLITTING A 5 MG TABLET
     Route: 048
  4. LISINOPRIL [Concomitant]
  5. NIASPAN [Concomitant]
  6. IMDUR [Concomitant]
  7. NEURONTIN [Concomitant]
  8. ZETIA [Concomitant]
  9. NORVASC [Concomitant]

REACTIONS (3)
  - PAIN IN EXTREMITY [None]
  - TRIGEMINAL NEURALGIA [None]
  - WRONG TECHNIQUE IN DRUG USAGE PROCESS [None]
